FAERS Safety Report 4359020-8 (Version None)
Quarter: 2004Q2

REPORT INFORMATION
  Report Type: 
  Country: None (occurrence: None)
  Receive Date: 20040517
  Receipt Date: 20040423
  Transmission Date: 20050107
  Serious: Yes (Disabling, Other)
  Sender: FDA-Public Use
  Company Number: US-GLAXOSMITHKLINE-A0508336A

PATIENT
  Age: 16 Year
  Sex: Male

DRUGS (2)
  1. ZOFRAN [Suspect]
     Dosage: 4MG TWICE PER DAY
     Route: 042
  2. RADIATION [Concomitant]

REACTIONS (2)
  - TOURETTE'S DISORDER [None]
  - UNEXPECTED THERAPEUTIC DRUG EFFECT [None]
